FAERS Safety Report 22236847 (Version 2)
Quarter: 2024Q3

REPORT INFORMATION
  Report Type: Spontaneous
  Country: BE (occurrence: BE)
  Receive Date: 20230420
  Receipt Date: 20240710
  Transmission Date: 20241016
  Serious: Yes (Other)
  Sender: CELLTRION
  Company Number: BE-CELLTRION INC.-2023BE007742

PATIENT

DRUGS (3)
  1. TRASTUZUMAB [Suspect]
     Active Substance: TRASTUZUMAB
     Indication: Breast cancer stage III
     Dosage: EVERY 3 WEEKS, CYCLIC
  2. TRASTUZUMAB [Suspect]
     Active Substance: TRASTUZUMAB
     Indication: HER2 positive breast cancer
     Dosage: UNKNOWN (TRASTUZUMAB TREATMENT WAS RESTARTED)
     Route: 065
  3. PACLITAXEL [Suspect]
     Active Substance: PACLITAXEL
     Indication: HER2 positive breast cancer
     Dosage: UNK

REACTIONS (9)
  - Ulcerative keratitis [Not Recovered/Not Resolved]
  - Herpes ophthalmic [Unknown]
  - Encephalitis herpes [Unknown]
  - Corneal disorder [Recovered/Resolved]
  - Cell-mediated cytotoxicity [Unknown]
  - Corneal toxicity [Unknown]
  - Conjunctival hyperaemia [Recovered/Resolved]
  - Corneal thinning [Recovered/Resolved]
  - Intentional dose omission [Unknown]
